FAERS Safety Report 9099158 (Version 1)
Quarter: 2013Q1

REPORT INFORMATION
  Report Type: Report from Study
  Country: JP (occurrence: JP)
  Receive Date: 20130213
  Receipt Date: 20130213
  Transmission Date: 20140127
  Serious: Yes (Hospitalization, Other)
  Sender: FDA-Public Use
  Company Number: JP-009507513-1209JPN011119

PATIENT
  Age: 60 Year
  Sex: Female
  Weight: 49 kg

DRUGS (11)
  1. PEGINTRON [Suspect]
     Indication: CHRONIC HEPATITIS C
     Dosage: 1.6 MICROGRAM PER KILOGRAM, UNK
     Route: 058
     Dates: start: 20120801, end: 20120815
  2. PEGINTRON [Suspect]
     Dosage: 1.3 MICROGRAM PER KILOGRAM, QW
     Route: 058
     Dates: start: 20120822, end: 20121024
  3. REBETOL [Suspect]
     Indication: CHRONIC HEPATITIS C
     Dosage: 600 MG, QD
     Route: 048
     Dates: start: 20120801, end: 20120814
  4. REBETOL [Suspect]
     Dosage: 200 MG, QD
     Route: 048
     Dates: start: 20120815, end: 20121207
  5. TELAVIC [Suspect]
     Indication: CHRONIC HEPATITIS C
     Dosage: 1500 MG,QD
     Route: 048
     Dates: start: 20120801, end: 20120821
  6. TELAVIC [Suspect]
     Dosage: 1000 MG QD
     Route: 048
     Dates: start: 20120822, end: 20120824
  7. TELAVIC [Suspect]
     Dosage: 500 MG, QD
     Route: 048
     Dates: start: 20120825, end: 20121023
  8. FERON [Suspect]
     Indication: CHRONIC HEPATITIS
     Dosage: 600 MG, QD
     Route: 042
     Dates: start: 20121107, end: 20121121
  9. FERON [Suspect]
     Dosage: 600 DF, THREE TIMES PER WEEK
     Route: 042
     Dates: start: 20121123, end: 20121207
  10. LOCHOL (FLUVASTATIN SODIUM) [Concomitant]
     Indication: CHRONIC HEPATITIS C
     Dosage: 20 MG, QD, FORMULATION: POR
     Route: 048
     Dates: end: 20121031
  11. SELBEX [Concomitant]
     Indication: PROPHYLAXIS
     Dosage: 150 MG, QD, FORMULATION: POR
     Route: 048
     Dates: start: 20120814

REACTIONS (2)
  - Dizziness [Recovering/Resolving]
  - Haemoglobin decreased [Recovering/Resolving]
